FAERS Safety Report 15170003 (Version 2)
Quarter: 2019Q3

REPORT INFORMATION
  Report Type: Spontaneous
  Country: US (occurrence: US)
  Receive Date: 20180720
  Receipt Date: 20190819
  Transmission Date: 20191004
  Serious: No
  Sender: FDA-Public Use
  Company Number: US-PFIZER INC-2018287227

PATIENT
  Sex: Female
  Weight: 68.27 kg

DRUGS (1)
  1. LYRICA [Suspect]
     Active Substance: PREGABALIN
     Indication: FIBROMYALGIA
     Dosage: 75 MG, 2X/DAY (75 MG RED AND WHITE CAPSULE, ONE IN MORNING AND ONE IN THE EVENING)
     Route: 048
     Dates: start: 1995

REACTIONS (5)
  - Intentional product misuse [Unknown]
  - Pain in extremity [Unknown]
  - Somnolence [Recovered/Resolved]
  - Pain [Unknown]
  - Feeling abnormal [Not Recovered/Not Resolved]
